FAERS Safety Report 25863739 (Version 1)
Quarter: 2025Q3

REPORT INFORMATION
  Report Type: Spontaneous
  Country: BR (occurrence: BR)
  Receive Date: 20250930
  Receipt Date: 20250930
  Transmission Date: 20251020
  Serious: Yes (Hospitalization)
  Sender: CHEPLAPHARM
  Company Number: BR-CHEPLA-2025009485

PATIENT
  Sex: Female
  Weight: 61 kg

DRUGS (29)
  1. CLONAZEPAM [Suspect]
     Active Substance: CLONAZEPAM
     Indication: Panic disorder
     Dates: start: 2014, end: 2016
  2. CLONAZEPAM [Suspect]
     Active Substance: CLONAZEPAM
     Indication: Depression
     Dates: start: 2014, end: 2016
  3. CLONAZEPAM [Suspect]
     Active Substance: CLONAZEPAM
     Indication: Anxiety
     Dates: start: 2014, end: 2016
  4. CLONAZEPAM [Suspect]
     Active Substance: CLONAZEPAM
     Indication: Panic disorder
     Route: 048
     Dates: start: 2016
  5. CLONAZEPAM [Suspect]
     Active Substance: CLONAZEPAM
     Indication: Depression
     Route: 048
     Dates: start: 2016
  6. CLONAZEPAM [Suspect]
     Active Substance: CLONAZEPAM
     Indication: Anxiety
     Route: 048
     Dates: start: 2016
  7. CLONAZEPAM [Suspect]
     Active Substance: CLONAZEPAM
     Indication: Panic disorder
     Route: 060
     Dates: start: 202507
  8. CLONAZEPAM [Suspect]
     Active Substance: CLONAZEPAM
     Indication: Depression
     Route: 060
     Dates: start: 202507
  9. CLONAZEPAM [Suspect]
     Active Substance: CLONAZEPAM
     Indication: Anxiety
     Route: 060
     Dates: start: 202507
  10. CLONAZEPAM [Suspect]
     Active Substance: CLONAZEPAM
     Indication: Panic disorder
     Route: 060
     Dates: start: 20250731
  11. CLONAZEPAM [Suspect]
     Active Substance: CLONAZEPAM
     Indication: Depression
     Route: 060
     Dates: start: 20250731
  12. CLONAZEPAM [Suspect]
     Active Substance: CLONAZEPAM
     Indication: Anxiety
     Route: 060
     Dates: start: 20250731
  13. CLONAZEPAM [Suspect]
     Active Substance: CLONAZEPAM
     Indication: Panic disorder
     Route: 048
     Dates: end: 202507
  14. CLONAZEPAM [Suspect]
     Active Substance: CLONAZEPAM
     Indication: Depression
     Route: 048
     Dates: end: 202507
  15. CLONAZEPAM [Suspect]
     Active Substance: CLONAZEPAM
     Indication: Anxiety
     Route: 048
     Dates: end: 202507
  16. CLONAZEPAM [Suspect]
     Active Substance: CLONAZEPAM
     Indication: Panic disorder
     Route: 048
  17. CLONAZEPAM [Suspect]
     Active Substance: CLONAZEPAM
     Indication: Depression
     Route: 048
  18. CLONAZEPAM [Suspect]
     Active Substance: CLONAZEPAM
     Indication: Anxiety
     Route: 048
  19. CITALOPRAM HYDROBROMIDE [Concomitant]
     Active Substance: CITALOPRAM HYDROBROMIDE
     Indication: Panic disorder
     Dosage: DAILY DOSE: 40 MILLIGRAM
     Route: 048
  20. CITALOPRAM HYDROBROMIDE [Concomitant]
     Active Substance: CITALOPRAM HYDROBROMIDE
     Indication: Anxiety
     Dosage: DAILY DOSE: 40 MILLIGRAM
     Route: 048
  21. CITALOPRAM HYDROBROMIDE [Concomitant]
     Active Substance: CITALOPRAM HYDROBROMIDE
     Indication: Depression
     Dosage: DAILY DOSE: 40 MILLIGRAM
     Route: 048
  22. Loredom [Concomitant]
     Indication: Toxicity to various agents
     Dosage: DAILY DOSE: 100 MILLIGRAM
     Route: 048
  23. ROSUVASTATIN CALCIUM [Concomitant]
     Active Substance: ROSUVASTATIN CALCIUM
     Indication: Cholesterosis
     Dosage: DAILY DOSE: 40 MILLIGRAM
     Route: 048
  24. PURAN [Concomitant]
     Active Substance: LEVOTHYROXINE SODIUM
     Indication: Blood pressure measurement
     Dosage: DAILY DOSE: 50 MILLIGRAM
     Route: 048
  25. LOSARTAN POTASSIUM [Concomitant]
     Active Substance: LOSARTAN POTASSIUM
     Indication: Thyroid disorder
     Route: 048
  26. PANTOPRAZOLE SODIUM [Concomitant]
     Active Substance: PANTOPRAZOLE SODIUM
     Indication: Depression
     Dosage: DAILY DOSE: 40 MILLIGRAM
  27. PANTOPRAZOLE SODIUM [Concomitant]
     Active Substance: PANTOPRAZOLE SODIUM
     Indication: Anxiety
     Dosage: DAILY DOSE: 40 MILLIGRAM
  28. PANTOPRAZOLE SODIUM [Concomitant]
     Active Substance: PANTOPRAZOLE SODIUM
     Indication: Panic disorder
     Dosage: DAILY DOSE: 40 MILLIGRAM
  29. ASPIRIN [Concomitant]
     Active Substance: ASPIRIN
     Indication: Prophylaxis

REACTIONS (8)
  - Cerebrovascular accident [Recovered/Resolved]
  - Cerebrovascular accident [Recovered/Resolved]
  - Anxiety [Recovered/Resolved]
  - Product administration error [Recovered/Resolved]
  - Drug ineffective [Recovered/Resolved]
  - Product prescribing error [Recovered/Resolved]
  - Product availability issue [Unknown]
  - Product solubility abnormal [Unknown]

NARRATIVE: CASE EVENT DATE: 20240101
